FAERS Safety Report 5398030-9 (Version None)
Quarter: 2007Q3

REPORT INFORMATION
  Report Type: 
  Country: None (occurrence: None)
  Receive Date: 20070726
  Receipt Date: 20070602
  Transmission Date: 20080115
  Serious: Yes (Death)
  Sender: FDA-Public Use
  Company Number: US-PURDUE-USA_2007_0028360

PATIENT
  Sex: Male

DRUGS (1)
  1. OXYCONTIN [Suspect]
     Indication: INTERVERTEBRAL DISC PROTRUSION

REACTIONS (6)
  - ANOREXIA [None]
  - CHEST PAIN [None]
  - CONVULSION [None]
  - INSOMNIA [None]
  - MOOD SWINGS [None]
  - MYOCARDIAL INFARCTION [None]
